FAERS Safety Report 10210868 (Version 1)
Quarter: 2014Q2

REPORT INFORMATION
  Report Type: Spontaneous
  Country: US (occurrence: None)
  Receive Date: 20140530
  Receipt Date: 20140530
  Transmission Date: 20141212
  Serious: Yes (Disabling)
  Sender: FDA-Public Use
  Company Number: None

PATIENT
  Age: 48 Year
  Sex: Female
  Weight: 102.06 kg

DRUGS (1)
  1. BOTOX INJECTIONS [Suspect]
     Indication: BLEPHAROSPASM
     Dates: end: 20140529

REACTIONS (2)
  - Dystonia [None]
  - Speech disorder [None]
